FAERS Safety Report 9266741 (Version 1)
Quarter: 2013Q2

REPORT INFORMATION
  Report Type: Spontaneous
  Country: GB (occurrence: GB)
  Receive Date: 20130502
  Receipt Date: 20130502
  Transmission Date: 20140414
  Serious: Yes (Other)
  Sender: FDA-Public Use
  Company Number: GB-PFIZER INC-2013135807

PATIENT
  Age: 3 Decade
  Sex: Female

DRUGS (2)
  1. LYRICA [Suspect]
     Indication: PAIN
     Dosage: 600 MG, UNK
  2. LYRICA [Suspect]
     Dosage: 1200 MG, UNK

REACTIONS (2)
  - Drug abuse [Unknown]
  - Oedema [Unknown]
